FAERS Safety Report 7343123-X (Version None)
Quarter: 2011Q1

REPORT INFORMATION
  Report Type: 
  Country: None (occurrence: None)
  Receive Date: 20110310
  Receipt Date: 20110308
  Transmission Date: 20110831
  Serious: No
  Sender: FDA-Public Use
  Company Number: US-PFIZER INC-2009175053

PATIENT

DRUGS (1)
  1. ARGATROBAN [Suspect]
     Dosage: UNK
     Route: 065
     Dates: start: 20080901

REACTIONS (1)
  - THERAPEUTIC RESPONSE DECREASED [None]
